FAERS Safety Report 20849896 (Version 1)
Quarter: 2022Q2

REPORT INFORMATION
  Report Type: Spontaneous
  Country: None (occurrence: US)
  Receive Date: 20220519
  Receipt Date: 20220519
  Transmission Date: 20220721
  Serious: No
  Sender: FDA-Public Use
  Company Number: US-Ascent Pharmaceuticals, Inc.-2128946

PATIENT
  Age: 73 Year
  Sex: Female
  Weight: 54.545 kg

DRUGS (2)
  1. DEXTROAMPHET SACCHARAT, AMPHET ASPARTATE, DEXTROAMPHET SULFATE AND AMP [Suspect]
     Active Substance: AMPHETAMINE ASPARTATE\AMPHETAMINE SULFATE\DEXTROAMPHETAMINE SACCHARATE\DEXTROAMPHETAMINE SULFATE
     Indication: Attention deficit hyperactivity disorder
     Route: 048
     Dates: start: 20220402, end: 20220404
  2. TIROSINT [Concomitant]
     Active Substance: LEVOTHYROXINE SODIUM
     Route: 065

REACTIONS (5)
  - Headache [Recovered/Resolved]
  - Nausea [Recovered/Resolved]
  - Dizziness [Recovered/Resolved]
  - Vertigo [Recovered/Resolved]
  - Body temperature increased [Recovered/Resolved]

NARRATIVE: CASE EVENT DATE: 20220403
